FAERS Safety Report 8205435 (Version 2)
Quarter: 2013Q1

REPORT INFORMATION
  Report Type: Spontaneous
  Country: US (occurrence: US)
  Receive Date: 20111028
  Receipt Date: 20130111
  Transmission Date: 20140127
  Serious: Yes (Hospitalization)
  Sender: FDA-Public Use
  Company Number: US-ALVOGEN-2011AL000086

PATIENT
  Age: 34 Year
  Sex: Female
  Weight: 90 kg

DRUGS (3)
  1. MACROBID [Suspect]
     Indication: URINARY TRACT INFECTION
     Dates: start: 201101
  2. REBIF [Suspect]
     Indication: MULTIPLE SCLEROSIS
     Route: 058
     Dates: start: 20041004, end: 201101
  3. REBIF [Suspect]
     Indication: MULTIPLE SCLEROSIS
     Route: 058
     Dates: start: 20110318

REACTIONS (1)
  - Drug-induced liver injury [Recovered/Resolved]
